FAERS Safety Report 23710667 (Version 1)
Quarter: 2024Q2

REPORT INFORMATION
  Report Type: Spontaneous
  Country: CN (occurrence: CN)
  Receive Date: 20240405
  Receipt Date: 20240405
  Transmission Date: 20240715
  Serious: Yes (Life-Threatening)
  Sender: FDA-Public Use
  Company Number: CN-BEH-2024170277

PATIENT
  Age: 52 Year
  Sex: Female
  Weight: 47.5 kg

DRUGS (3)
  1. ALBURX [Suspect]
     Active Substance: ALBUMIN HUMAN
     Indication: Supplementation therapy
     Dosage: 50 ML, OD
     Route: 042
     Dates: start: 20240321, end: 20240321
  2. ALBURX [Suspect]
     Active Substance: ALBUMIN HUMAN
     Indication: Blood albumin decreased
  3. SODIUM CHLORIDE [Concomitant]
     Active Substance: SODIUM CHLORIDE
     Indication: Vehicle solution use
     Dosage: 100 ML
     Dates: start: 20240321

REACTIONS (8)
  - Anaphylactic shock [Recovered/Resolved]
  - Face oedema [Recovered/Resolved]
  - Flushing [Recovered/Resolved]
  - Flushing [Recovered/Resolved]
  - Pruritus [Recovered/Resolved]
  - Blood glucose increased [Recovered/Resolved]
  - Blood pressure decreased [Recovered/Resolved]
  - Rash [Recovered/Resolved]

NARRATIVE: CASE EVENT DATE: 20240321
